FAERS Safety Report 9566950 (Version 1)
Quarter: 2013Q3

REPORT INFORMATION
  Report Type: Spontaneous
  Country: US (occurrence: US)
  Receive Date: 20130930
  Receipt Date: 20130930
  Transmission Date: 20140515
  Serious: No
  Sender: FDA-Public Use
  Company Number: US-AMGEN-USASP2012061176

PATIENT
  Sex: Female

DRUGS (13)
  1. ENBREL [Suspect]
     Indication: PSORIASIS
     Dosage: 50 MG, QWK
     Route: 058
  2. VICTOZA [Concomitant]
     Dosage: 18 MG/3ML
  3. METFORMIN [Concomitant]
     Dosage: 500 MG, UNK
  4. LISINOPRIL [Concomitant]
     Dosage: 2.5 MG, UNK
  5. LOVASTATIN [Concomitant]
     Dosage: 10 MG, UNK
  6. ZYRTEC [Concomitant]
     Dosage: 5 MG, UNK
  7. ASPIRIN [Concomitant]
     Dosage: 81 MG, UNK
  8. PRILOSEC                           /00661201/ [Concomitant]
     Dosage: 10 MG, UNK
  9. MULTIVITAMINS, PLAIN [Concomitant]
     Dosage: UNK
  10. VITAMIN B [Concomitant]
     Dosage: UNK
  11. FISH OIL [Concomitant]
     Dosage: UNK
  12. LANTUS [Concomitant]
     Dosage: 100/ML
  13. CHROMIUM [Concomitant]
     Dosage: 100 MUG, UNK

REACTIONS (2)
  - Therapeutic response decreased [Unknown]
  - Psoriasis [Unknown]
